FAERS Safety Report 19920146 (Version 1)
Quarter: 2021Q4

REPORT INFORMATION
  Report Type: Spontaneous
  Country: US (occurrence: US)
  Receive Date: 20211006
  Receipt Date: 20211006
  Transmission Date: 20220304
  Serious: No
  Sender: FDA-Public Use
  Company Number: 2021A732952

PATIENT
  Age: 634 Month
  Sex: Female
  Weight: 61.2 kg

DRUGS (1)
  1. LYNPARZA [Suspect]
     Active Substance: OLAPARIB
     Indication: Ovarian cancer
     Route: 048
     Dates: start: 201912

REACTIONS (3)
  - Blood folate decreased [Recovered/Resolved]
  - Macrocytosis [Not Recovered/Not Resolved]
  - Mean cell volume increased [Not Recovered/Not Resolved]

NARRATIVE: CASE EVENT DATE: 20201001
